FAERS Safety Report 7817020-7 (Version None)
Quarter: 2011Q4

REPORT INFORMATION
  Report Type: 
  Country: None (occurrence: None)
  Receive Date: 20111017
  Receipt Date: 20111003
  Transmission Date: 20120403
  Serious: No
  Sender: FDA-Public Use
  Company Number: US-ELI_LILLY_AND_COMPANY-US201104003281

PATIENT
  Sex: Female

DRUGS (1)
  1. CYMBALTA [Suspect]
     Indication: DEPRESSION
     Dosage: 60 MG, BID
     Dates: start: 20050101, end: 20110712

REACTIONS (9)
  - MEMORY IMPAIRMENT [None]
  - DRUG INEFFECTIVE [None]
  - DRUG DOSE OMISSION [None]
  - GAIT DISTURBANCE [None]
  - HYPOAESTHESIA [None]
  - MENTAL DISORDER [None]
  - JOINT INJURY [None]
  - FEELING ABNORMAL [None]
  - NEUROPATHY PERIPHERAL [None]
